FAERS Safety Report 5441265-7 (Version None)
Quarter: 2007Q3

REPORT INFORMATION
  Report Type: 
  Country: None (occurrence: None)
  Receive Date: 20070901
  Receipt Date: 20070824
  Transmission Date: 20080115
  Serious: Yes (Hospitalization, Other)
  Sender: FDA-Public Use
  Company Number: GB-PFIZER INC-2007071214

PATIENT
  Sex: Female
  Weight: 71 kg

DRUGS (9)
  1. GENOTROPIN [Suspect]
     Indication: HYPOPITUITARISM
     Dosage: DAILY DOSE:.2MG-TEXT:DAILY
     Route: 058
     Dates: start: 20030226, end: 20070729
  2. HYDROCORTISONE [Concomitant]
     Dosage: DAILY DOSE:20MG
     Route: 048
  3. LEVOTHYROXINE SODIUM [Concomitant]
     Route: 048
  4. SIMVASTATIN [Concomitant]
     Dosage: DAILY DOSE:40MG
     Route: 048
  5. OMEPRAZOLE [Concomitant]
     Dosage: DAILY DOSE:40MG
     Route: 048
  6. VITAMIN B-12 [Concomitant]
     Dosage: TEXT:1 MG 3 TIMES MONTLY
     Route: 030
  7. TIBOLONE [Concomitant]
     Dosage: DAILY DOSE:2.5MG
     Route: 048
  8. METFORMIN HCL [Concomitant]
     Dosage: TEXT:850 MG 3 TIMES DAILY
     Route: 048
  9. GLICLAZIDE [Concomitant]
     Dosage: TEXT:80 MG TWICE DAILY
     Route: 048

REACTIONS (1)
  - MULTIPLE MYELOMA [None]
